FAERS Safety Report 11715079 (Version 3)
Quarter: 2015Q4

REPORT INFORMATION
  Report Type: Spontaneous
  Country: US (occurrence: US)
  Receive Date: 20151109
  Receipt Date: 20151228
  Transmission Date: 20160304
  Serious: Yes (Hospitalization, Other)
  Sender: FDA-Public Use
  Company Number: US-SHIRE-US201513686

PATIENT
  Age: 12 Year
  Sex: Male

DRUGS (2)
  1. ELAPRASE [Suspect]
     Active Substance: IDURSULFASE
     Indication: MUCOPOLYSACCHARIDOSIS II
     Dosage: UNK UNK, 1X/WEEK
     Route: 041
     Dates: start: 20100101
  2. ELAPRASE [Suspect]
     Active Substance: IDURSULFASE
     Dosage: 24 MG(4 VIALS), 1X/WEEK
     Route: 041
     Dates: start: 20080422

REACTIONS (1)
  - Seizure [Recovered/Resolved]

NARRATIVE: CASE EVENT DATE: 20151103
